FAERS Safety Report 9243316 (Version 1)
Quarter: 2013Q2

REPORT INFORMATION
  Report Type: Spontaneous
  Country: US (occurrence: US)
  Receive Date: 20130419
  Receipt Date: 20130419
  Transmission Date: 20140414
  Serious: Yes (Other)
  Sender: FDA-Public Use
  Company Number: US-BAXTER-2013BAX014130

PATIENT
  Age: 71 Year
  Sex: Female

DRUGS (1)
  1. CYCLOPHOSPHAMIDE FOR INJECTION, USP [Suspect]
     Indication: VASCULITIS

REACTIONS (1)
  - Raynaud^s phenomenon [Not Recovered/Not Resolved]
